FAERS Safety Report 7244181-3 (Version None)
Quarter: 2011Q1

REPORT INFORMATION
  Report Type: 
  Country: None (occurrence: None)
  Receive Date: 20110125
  Receipt Date: 20110121
  Transmission Date: 20110831
  Serious: Yes (Other)
  Sender: FDA-Public Use
  Company Number: US-PFIZER INC-2011015590

PATIENT
  Sex: Female
  Weight: 77.098 kg

DRUGS (4)
  1. CELEBREX [Suspect]
     Indication: SPINAL COLUMN STENOSIS
  2. VIOXX [Suspect]
     Indication: SPINAL COLUMN STENOSIS
  3. VIOXX [Suspect]
     Indication: OSTEOARTHRITIS
     Dosage: UNK
  4. CELEBREX [Suspect]
     Indication: OSTEOARTHRITIS
     Dosage: UNK

REACTIONS (1)
  - BLOOD URINE PRESENT [None]
